FAERS Safety Report 17494477 (Version 1)
Quarter: 2020Q1

REPORT INFORMATION
  Report Type: Spontaneous
  Country: US (occurrence: US)
  Receive Date: 20200221
  Receipt Date: 20200221
  Transmission Date: 20200409
  Serious: Yes (Hospitalization)
  Sender: FDA-Public Use
  Company Number: None

PATIENT
  Age: 34 Year
  Sex: Female

DRUGS (1)
  1. GLATIRAMER 40MG/ML [Suspect]
     Active Substance: GLATIRAMER
     Route: 058
     Dates: start: 20190514

REACTIONS (10)
  - Depression [None]
  - Muscle spasms [None]
  - Diarrhoea [None]
  - Band sensation [None]
  - Urticaria [None]
  - Fatigue [None]
  - Flushing [None]
  - Wrong technique in product usage process [None]
  - Dyspnoea [None]
  - Dizziness [None]
